FAERS Safety Report 5796963-2 (Version None)
Quarter: 2008Q3

REPORT INFORMATION
  Report Type: 
  Country: None (occurrence: None)
  Receive Date: 20080701
  Receipt Date: 20080701
  Transmission Date: 20090109
  Serious: Yes (Hospitalization)
  Sender: FDA-Public Use
  Company Number: DE-WYE-G01790708

PATIENT
  Sex: Male
  Weight: 72 kg

DRUGS (3)
  1. TORISEL [Suspect]
     Indication: RENAL CANCER METASTATIC
     Route: 042
     Dates: start: 20080523, end: 20080627
  2. POTASSIUM CHLORIDE [Concomitant]
     Indication: HYPOKALAEMIA
     Route: 048
     Dates: start: 20080625, end: 20080629
  3. CEFTRIAXONE [Concomitant]
     Indication: URINARY TRACT INFECTION
     Route: 042
     Dates: start: 20080618, end: 20080620

REACTIONS (3)
  - ANOREXIA [None]
  - DIZZINESS [None]
  - SEPSIS [None]
